FAERS Safety Report 5495619-3 (Version None)
Quarter: 2007Q4

REPORT INFORMATION
  Report Type: 
  Country: None (occurrence: None)
  Receive Date: 20071025
  Receipt Date: 20071018
  Transmission Date: 20080405
  Serious: Yes (Other)
  Sender: FDA-Public Use
  Company Number: FR-BRISTOL-MYERS SQUIBB COMPANY-13948088

PATIENT
  Age: 54 Year
  Sex: Female

DRUGS (4)
  1. BLINDED: IPILIMUMAB [Suspect]
     Indication: MALIGNANT MELANOMA
     Route: 042
     Dates: start: 20070920, end: 20070920
  2. BLINDED: PLACEBO [Suspect]
     Indication: MALIGNANT MELANOMA
     Dates: start: 20070920
  3. DACARBAZINE [Suspect]
     Indication: MALIGNANT MELANOMA
     Route: 042
     Dates: start: 20070920, end: 20070920
  4. WARFILONE [Concomitant]

REACTIONS (1)
  - NEUTROPENIA [None]
